FAERS Safety Report 9302137 (Version 1)
Quarter: 2013Q2

REPORT INFORMATION
  Report Type: Spontaneous
  Country: KW (occurrence: KW)
  Receive Date: 20130522
  Receipt Date: 20130522
  Transmission Date: 20140414
  Serious: Yes (Hospitalization)
  Sender: FDA-Public Use
  Company Number: KW-B.I. PHARMACEUTICALS,INC./RIDGEFIELD-2013-CN-00823CN

PATIENT
  Age: 57 Year
  Sex: Male

DRUGS (3)
  1. PRADAXA [Suspect]
     Indication: ATRIAL FIBRILLATION
     Dosage: 220 MG
  2. DIGOXIN [Concomitant]
  3. ATENOLOL [Concomitant]

REACTIONS (1)
  - Embolic stroke [Not Recovered/Not Resolved]
